FAERS Safety Report 6244015-X (Version None)
Quarter: 2009Q2

REPORT INFORMATION
  Report Type: 
  Country: None (occurrence: None)
  Receive Date: 20090623
  Receipt Date: 20090609
  Transmission Date: 20091009
  Serious: Yes (Hospitalization, Disabling, Other)
  Sender: FDA-Public Use
  Company Number: 2008-00444

PATIENT
  Age: 61 Year
  Sex: Female
  Weight: 100 kg

DRUGS (11)
  1. VELCADE [Suspect]
     Indication: MULTIPLE MYELOMA
     Dosage: 2.6 MG, INTRAVENOUS
     Route: 042
     Dates: start: 20071112, end: 20080128
  2. ACYCLOVIR [Concomitant]
  3. ALLOPURINOL [Concomitant]
  4. AMITRIPTYLINE HYDROCHLORIDE [Concomitant]
  5. CODEINE SUL TAB [Concomitant]
  6. SULFAMETHOXAZOLE AND TRIMETHOPRIM [Concomitant]
  7. DEXAMETHASONE [Concomitant]
  8. HYOSCINE HBR HYT [Concomitant]
  9. METOCLOPRAMIDE [Concomitant]
  10. ACETAMINOPHEN [Concomitant]
  11. SENNA (SENNA) [Concomitant]

REACTIONS (7)
  - AUTONOMIC NEUROPATHY [None]
  - DYSSTASIA [None]
  - FALL [None]
  - LOSS OF CONSCIOUSNESS [None]
  - MOBILITY DECREASED [None]
  - ORTHOSTATIC HYPOTENSION [None]
  - SYNCOPE [None]
